FAERS Safety Report 13528932 (Version 4)
Quarter: 2019Q3

REPORT INFORMATION
  Report Type: Spontaneous
  Country: US (occurrence: US)
  Receive Date: 20170509
  Receipt Date: 20190731
  Transmission Date: 20191004
  Serious: Yes (Hospitalization)
  Sender: FDA-Public Use
  Company Number: US-ACTELION-A-US2017-153493

PATIENT
  Sex: Female
  Weight: 117.01 kg

DRUGS (4)
  1. REVATIO [Concomitant]
     Active Substance: SILDENAFIL CITRATE
  2. TRACLEER [Suspect]
     Active Substance: BOSENTAN
     Indication: PULMONARY ARTERIAL HYPERTENSION
     Dosage: 125 MG, BID
     Route: 048
     Dates: start: 201409
  3. VELETRI [Suspect]
     Active Substance: EPOPROSTENOL
     Indication: PULMONARY ARTERIAL HYPERTENSION
     Dosage: 76 NG/KG, PER MIN
     Route: 042
     Dates: start: 201607
  4. COUMADIN [Concomitant]
     Active Substance: WARFARIN SODIUM

REACTIONS (7)
  - Fall [Unknown]
  - Syncope [Unknown]
  - Cerebral haemorrhage [Unknown]
  - Patella fracture [Recovering/Resolving]
  - Pain [Recovering/Resolving]
  - Road traffic accident [Recovering/Resolving]
  - Arrhythmia [Unknown]
